FAERS Safety Report 10390886 (Version 2)
Quarter: 2014Q3

REPORT INFORMATION
  Report Type: Spontaneous
  Country: IT (occurrence: IT)
  Receive Date: 20140818
  Receipt Date: 20140918
  Transmission Date: 20150326
  Serious: Yes (Life-Threatening)
  Sender: FDA-Public Use
  Company Number: IT-TEVA-501258ISR

PATIENT
  Age: 70 Year
  Sex: Male

DRUGS (5)
  1. GENALEN 70 [Concomitant]
     Indication: OSTEOPOROSIS
     Dosage: 70 MILLIGRAM DAILY;
     Route: 048
  2. CACIT VITAMINA D3 [Concomitant]
     Indication: OSTEOPOROSIS
     Route: 048
  3. MYFENAX [Suspect]
     Active Substance: MYCOPHENOLATE MOFETIL
     Indication: PROPHYLAXIS AGAINST TRANSPLANT REJECTION
     Dosage: 1 GRAM DAILY;
     Route: 048
  4. PROGRAF 0.5 MG [Concomitant]
     Indication: PROPHYLAXIS AGAINST TRANSPLANT REJECTION
     Dosage: 1 MILLIGRAM DAILY;
     Route: 048
  5. QUARK 5MG [Concomitant]
     Dosage: 5 MILLIGRAM DAILY;
     Route: 048

REACTIONS (2)
  - Laryngeal oedema [Recovered/Resolved]
  - Respiratory disorder [Recovered/Resolved]

NARRATIVE: CASE EVENT DATE: 20140720
